FAERS Safety Report 24618612 (Version 2)
Quarter: 2025Q1

REPORT INFORMATION
  Report Type: Spontaneous
  Country: CA (occurrence: CA)
  Receive Date: 20241114
  Receipt Date: 20250315
  Transmission Date: 20250408
  Serious: Yes (Hospitalization, Other)
  Sender: JOHNSON AND JOHNSON
  Company Number: CA-JNJFOC-20241129161

PATIENT
  Age: 16 Year
  Sex: Male

DRUGS (2)
  1. REMICADE [Suspect]
     Active Substance: INFLIXIMAB
     Indication: Colitis ulcerative
     Route: 041
  2. AZATHIOPRINE [Concomitant]
     Active Substance: AZATHIOPRINE
     Indication: Colitis ulcerative

REACTIONS (6)
  - Blood albumin decreased [Recovered/Resolved]
  - Hypertriglyceridaemia [Recovered/Resolved]
  - Condition aggravated [Unknown]
  - Colitis ulcerative [Recovered/Resolved]
  - Haemoglobin decreased [Recovered/Resolved]
  - Loss of therapeutic response [Recovered/Resolved]
